FAERS Safety Report 4618063-7 (Version None)
Quarter: 2005Q1

REPORT INFORMATION
  Report Type: 
  Country: None (occurrence: None)
  Receive Date: 20050322
  Receipt Date: 20050307
  Transmission Date: 20050727
  Serious: Yes (Hospitalization, Other)
  Sender: FDA-Public Use
  Company Number: 2005023650

PATIENT
  Age: 59 Year
  Sex: Female
  Weight: 48.0813 kg

DRUGS (5)
  1. BEXTRA [Suspect]
     Indication: BURSITIS
     Dosage: 20 MG (20 MG, 1 IN 1 D), ORAL
     Route: 048
     Dates: start: 20021009
  2. BEXTRA [Suspect]
     Indication: OSTEOARTHRITIS
     Dosage: 20 MG (20 MG, 1 IN 1 D), ORAL
     Route: 048
     Dates: start: 20021009
  3. ALENDRONATE SODIUM [Concomitant]
  4. TRIAMCINOLONE ACETONIDE [Concomitant]
  5. ASPIRIN [Concomitant]

REACTIONS (8)
  - BURSA DISORDER [None]
  - CHONDROPATHY [None]
  - DRUG INEFFECTIVE [None]
  - FALL [None]
  - INJURY [None]
  - OEDEMA PERIPHERAL [None]
  - OSTEOARTHRITIS [None]
  - ROTATOR CUFF SYNDROME [None]
